FAERS Safety Report 9306001 (Version 3)
Quarter: 2013Q3

REPORT INFORMATION
  Report Type: Spontaneous
  Country: US (occurrence: US)
  Receive Date: 20130523
  Receipt Date: 20130916
  Transmission Date: 20140515
  Serious: No
  Sender: FDA-Public Use
  Company Number: US-TEVA-406869USA

PATIENT
  Age: 27 Year
  Sex: Female
  Weight: 76.27 kg

DRUGS (1)
  1. FENTORA [Suspect]
     Indication: BREAKTHROUGH PAIN
     Dosage: X ONE DOSE
     Route: 002
     Dates: start: 20130425, end: 20130425

REACTIONS (5)
  - Salivary hypersecretion [Recovered/Resolved]
  - Vomiting [Recovered/Resolved]
  - Live birth [Unknown]
  - Dysgeusia [Recovered/Resolved]
  - Product taste abnormal [Unknown]
